FAERS Safety Report 9242952 (Version 1)
Quarter: 2013Q2

REPORT INFORMATION
  Report Type: Spontaneous
  Country: US (occurrence: US)
  Receive Date: 20130419
  Receipt Date: 20130419
  Transmission Date: 20140414
  Serious: No
  Sender: FDA-Public Use
  Company Number: US-BAYER-2013-049839

PATIENT
  Age: 66 Year
  Sex: Female
  Weight: 72.11 kg

DRUGS (3)
  1. ALEVE CAPLET [Suspect]
     Indication: ARTHRITIS
     Dosage: 1 DF, QD
     Route: 048
     Dates: start: 201302, end: 20130413
  2. COQ10 [Concomitant]
  3. VITAMIN D3 [Concomitant]

REACTIONS (2)
  - Rash [Recovering/Resolving]
  - Incorrect drug administration duration [None]
